FAERS Safety Report 6122619-2 (Version None)
Quarter: 2009Q1

REPORT INFORMATION
  Report Type: 
  Country: None (occurrence: None)
  Receive Date: 20090318
  Receipt Date: 20090314
  Transmission Date: 20090719
  Serious: Yes (Life-Threatening, Other)
  Sender: FDA-Public Use
  Company Number: NL-ASTRAZENECA-2008AC00175

PATIENT
  Age: 37 Year
  Sex: Male

DRUGS (3)
  1. SEROQUEL [Suspect]
     Indication: MOOD SWINGS
     Dosage: UP TO 800MG A DAY
     Route: 048
  2. IMIPRAMINE [Concomitant]
  3. ZOLOFT [Concomitant]
     Route: 048

REACTIONS (3)
  - DRUG ABUSE [None]
  - OVERDOSE [None]
  - SUICIDE ATTEMPT [None]
